FAERS Safety Report 7331691-3 (Version None)
Quarter: 2011Q1

REPORT INFORMATION
  Report Type: 
  Country: None (occurrence: None)
  Receive Date: 20110304
  Receipt Date: 20090413
  Transmission Date: 20110831
  Serious: Yes (Death, Other)
  Sender: FDA-Public Use
  Company Number: US-BAYER-200941259NA

PATIENT
  Sex: Male
  Weight: 73.016 kg

DRUGS (38)
  1. PLAVIX [Concomitant]
     Dosage: 100 MG, QD
     Route: 048
     Dates: start: 20080415, end: 20080427
  2. CAPTOPRIL [Concomitant]
     Dosage: 3.125 MG, TID
     Route: 048
     Dates: start: 20080418, end: 20080427
  3. HYDROMORPHONE [Concomitant]
     Indication: PAIN
     Dosage: 0.5 MG, PRN
     Route: 058
     Dates: start: 20080425, end: 20080427
  4. LEVOPHED [Concomitant]
     Dosage: UNK
     Dates: start: 20080415, end: 20080428
  5. PROTAMINE SULFATE [Concomitant]
     Dosage: 150 MG, UNK
     Route: 042
  6. CALCIUM CHLORIDE [Concomitant]
     Dosage: 2 G, UNK
     Dates: start: 20080424, end: 20080424
  7. TYLOX [Concomitant]
  8. HYDRALAZINE [Concomitant]
     Dosage: 25 MG, UNK
     Route: 048
     Dates: start: 20080425, end: 20080427
  9. ALDACTONE [Concomitant]
     Dosage: UNK UNK, QD
     Route: 048
  10. ZINACEF [Concomitant]
     Dosage: 1.5 G, UNK
     Dates: start: 20080424, end: 20080425
  11. VASOPRESSIN [Concomitant]
     Dosage: 4 U, UNK
     Route: 042
     Dates: start: 20080424, end: 20080424
  12. INSULIN [Concomitant]
     Dosage: UNK
     Route: 058
     Dates: start: 20080424, end: 20080428
  13. FIORINAL [Concomitant]
     Indication: HEADACHE
  14. AMIODARONE [Concomitant]
     Dosage: 400 MG, UNK
     Route: 048
     Dates: start: 20080416, end: 20080428
  15. LOSARTAN POTASSIUM [Concomitant]
     Dosage: 100 MG, UNK
     Route: 048
  16. INTEGRILIN [Concomitant]
     Dosage: UNK
     Route: 042
     Dates: start: 20080415, end: 20080416
  17. PLASMA [Concomitant]
     Dosage: 9 U, UNK
     Dates: start: 20080428
  18. XANAX [Concomitant]
  19. ASPIRIN [Concomitant]
     Dosage: 325 MG, QD
     Route: 048
     Dates: end: 20080427
  20. HEPARIN [Concomitant]
     Dosage: UNK
     Dates: start: 20080414, end: 20080427
  21. PRILOSEC [Concomitant]
     Dosage: 40 MG, QD
     Route: 048
     Dates: start: 20080416, end: 20080427
  22. DOPAMINE [Concomitant]
     Route: 042
  23. TRASYLOL [Suspect]
     Indication: CORONARY ARTERY BYPASS
     Route: 042
     Dates: start: 20080424
  24. IBUPROFEN [Concomitant]
  25. LIPITOR [Concomitant]
     Dosage: 20 MG, QD
     Route: 048
     Dates: end: 20080427
  26. DILTIAZEM [Concomitant]
     Dosage: 240 MG, QD
     Route: 048
     Dates: end: 20080427
  27. IMDUR [Concomitant]
     Dosage: 30 MG, QD
     Route: 048
     Dates: start: 20080419
  28. EPINEPHRINE [Concomitant]
     Dosage: UNK
     Route: 042
     Dates: start: 20080424, end: 20080427
  29. RED BLOOD CELLS [Concomitant]
     Dosage: 3 U, UNK
     Dates: start: 20080428
  30. CENTRUM SILVER [Concomitant]
     Route: 048
  31. LASIX [Concomitant]
     Dosage: UNK
     Route: 042
     Dates: start: 20080414, end: 20080427
  32. NITROGLYCERIN [Concomitant]
     Dosage: UNK
     Route: 042
     Dates: start: 20080414, end: 20080419
  33. VALSARTAN [Concomitant]
  34. METOPROLOL [Concomitant]
     Dosage: 25 MG, BID
     Dates: end: 20080427
  35. PLETAL [Concomitant]
     Dosage: 100 MG, QD
     Dates: end: 20080419
  36. LEVALBUTEROL HCL [Concomitant]
     Dosage: 0.63 MG, TID
     Dates: start: 20080419, end: 20080427
  37. DOBUTAMINE HCL [Concomitant]
     Dosage: UNK
     Route: 042
     Dates: start: 20080424, end: 20080428
  38. DALTEPARIN SODIUM [Concomitant]
     Dosage: 9000 U, UNK
     Route: 058
     Dates: start: 20080412, end: 20080414

REACTIONS (13)
  - RENAL INJURY [None]
  - RENAL IMPAIRMENT [None]
  - RENAL FAILURE [None]
  - MULTI-ORGAN FAILURE [None]
  - FEAR [None]
  - PAIN [None]
  - EMOTIONAL DISTRESS [None]
  - DEATH [None]
  - STRESS [None]
  - UNEVALUABLE EVENT [None]
  - INJURY [None]
  - ANXIETY [None]
  - ANHEDONIA [None]
